FAERS Safety Report 7544999-3 (Version None)
Quarter: 2011Q2

REPORT INFORMATION
  Report Type: 
  Country: None (occurrence: None)
  Receive Date: 20110614
  Receipt Date: 20110525
  Transmission Date: 20111010
  Serious: Yes (Other)
  Sender: FDA-Public Use
  Company Number: US-BAYER-2011-043817

PATIENT
  Age: 64 Year
  Sex: Male

DRUGS (1)
  1. SORAFENIB (RAF KINASE INHIBITOR) [Suspect]
     Indication: HEPATIC NEOPLASM MALIGNANT
     Dosage: 400 MG, BID
     Route: 048
     Dates: start: 20110510, end: 20110501

REACTIONS (6)
  - BLOOD BILIRUBIN INCREASED [None]
  - LETHARGY [None]
  - FATIGUE [None]
  - CONFUSIONAL STATE [None]
  - BLOOD PRESSURE INCREASED [None]
  - GASTRIC DISORDER [None]
